FAERS Safety Report 10354482 (Version 1)
Quarter: 2014Q3

REPORT INFORMATION
  Report Type: Spontaneous
  Country: CH (occurrence: CH)
  Receive Date: 20140731
  Receipt Date: 20140731
  Transmission Date: 20150326
  Serious: Yes (Hospitalization)
  Sender: FDA-Public Use
  Company Number: PHHY2014CH091489

PATIENT
  Age: 38 Year
  Sex: Male
  Weight: 61 kg

DRUGS (6)
  1. CLOPIN ECO [Suspect]
     Active Substance: CLOZAPINE
     Dosage: 350 MG/D
     Dates: start: 20140424
  2. CLOPIN ECO [Suspect]
     Active Substance: CLOZAPINE
     Dosage: 300 MG/D
     Dates: start: 20140421
  3. CLOPIXOL [Suspect]
     Active Substance: ZUCLOPENTHIXOL ACETATE
     Indication: SCHIZOPHRENIA
     Dosage: 80 MG, UNK
     Route: 048
     Dates: start: 20140424
  4. CLOPIN ECO [Suspect]
     Active Substance: CLOZAPINE
     Indication: SCHIZOPHRENIA
     Dosage: 200 MG/D
     Route: 048
     Dates: start: 2006, end: 20140427
  5. METHADONE [Suspect]
     Active Substance: METHADONE HYDROCHLORIDE
     Dosage: 10 MG, QD
     Route: 048
     Dates: start: 2011
  6. RITALIN [Suspect]
     Active Substance: METHYLPHENIDATE HYDROCHLORIDE
     Dosage: 40 MG, QD
     Dates: start: 2011

REACTIONS (3)
  - Pulmonary embolism [Recovering/Resolving]
  - Painful respiration [Recovered/Resolved]
  - Pneumonia [Recovering/Resolving]

NARRATIVE: CASE EVENT DATE: 20140427
